FAERS Safety Report 5243464-6 (Version None)
Quarter: 2007Q1

REPORT INFORMATION
  Report Type: 
  Country: None (occurrence: None)
  Receive Date: 20070222
  Receipt Date: 20070207
  Transmission Date: 20070707
  Serious: Yes (Disabling, Other)
  Sender: FDA-Public Use
  Company Number: PHRM2007FR00509

PATIENT
  Age: 71 Year
  Sex: Male
  Weight: 66 kg

DRUGS (5)
  1. LEXOMIL [Concomitant]
     Route: 048
  2. OGAST [Concomitant]
  3. CONTRAMAL [Concomitant]
  4. JOSIR [Concomitant]
  5. ZOMETA [Suspect]
     Indication: MULTIPLE MYELOMA
     Dosage: 4 MG, QMO
     Route: 042
     Dates: start: 20020501, end: 20060301

REACTIONS (4)
  - DENTAL CARE [None]
  - IMPAIRED HEALING [None]
  - OSTEONECROSIS [None]
  - TOOTH EXTRACTION [None]
